FAERS Safety Report 25580684 (Version 1)
Quarter: 2025Q3

REPORT INFORMATION
  Report Type: Spontaneous
  Country: US (occurrence: US)
  Receive Date: 20250718
  Receipt Date: 20250718
  Transmission Date: 20251021
  Serious: No
  Sender: NOVO NORDISK
  Company Number: US-NOVOPROD-1429152

PATIENT
  Age: 26 Year
  Sex: Female

DRUGS (1)
  1. WEGOVY [Suspect]
     Active Substance: SEMAGLUTIDE
     Indication: Obesity
     Dosage: 2.4 MG, QW
     Dates: start: 20240901

REACTIONS (3)
  - Limb discomfort [Unknown]
  - Allodynia [Not Recovered/Not Resolved]
  - Sensitive skin [Unknown]

NARRATIVE: CASE EVENT DATE: 20250305
